FAERS Safety Report 8499726-2 (Version None)
Quarter: 2012Q3

REPORT INFORMATION
  Report Type: 
  Country: None (occurrence: None)
  Receive Date: 20120710
  Receipt Date: 20120706
  Transmission Date: 20120928
  Serious: Yes (Death, Hospitalization)
  Sender: FDA-Public Use
  Company Number: FR-BAYER-2012-068038

PATIENT
  Age: 73 Year
  Sex: Female

DRUGS (3)
  1. OXYCODONE HCL [Suspect]
     Indication: PAIN
  2. PLACEBO [Suspect]
     Indication: HEPATIC NEOPLASM MALIGNANT
     Dosage: UNK
     Route: 048
     Dates: start: 20110722, end: 20111026
  3. SORAFENIB (RAF KINASE INHIBITOR) [Suspect]
     Indication: HEPATIC NEOPLASM MALIGNANT
     Dosage: 800 MG, QD
     Route: 048
     Dates: start: 20110722, end: 20111026

REACTIONS (2)
  - HEPATIC NEOPLASM MALIGNANT [None]
  - TUMOUR NECROSIS [None]
